FAERS Safety Report 9418153 (Version 1)
Quarter: 2013Q3

REPORT INFORMATION
  Report Type: Spontaneous
  Country: US (occurrence: US)
  Receive Date: 20130724
  Receipt Date: 20130724
  Transmission Date: 20140515
  Serious: No
  Sender: FDA-Public Use
  Company Number: US-009507513-1306USA005248

PATIENT
  Sex: Female
  Weight: 52.15 kg

DRUGS (12)
  1. CLARITIN REDITABS 12HR [Suspect]
     Indication: SINUS HEADACHE
     Dosage: 5 MG, ONCE
     Route: 048
     Dates: start: 20130605
  2. CLARITIN REDITABS 12HR [Suspect]
     Indication: MEDICAL OBSERVATION
  3. CLARITIN REDITABS 12HR [Suspect]
     Indication: SINUS HEADACHE
  4. CLARITIN REDITABS 12HR [Suspect]
     Indication: SINUS HEADACHE
  5. CLARITIN REDITABS 12HR [Suspect]
     Indication: HYPOAESTHESIA
  6. LOSARTAN POTASSIUM [Concomitant]
     Indication: HYPERTENSION
     Route: 048
  7. ASPIRIN [Concomitant]
     Indication: PRODUCT USED FOR UNKNOWN INDICATION
     Route: 048
  8. KRILL OIL [Concomitant]
     Indication: PRODUCT USED FOR UNKNOWN INDICATION
     Route: 048
  9. CALCIUM (UNSPECIFIED) (+) MAGNESIUM (UNSPECIFIED) (+) VITAMIN D (UNSPE [Concomitant]
     Indication: PRODUCT USED FOR UNKNOWN INDICATION
  10. GARLIC [Concomitant]
     Indication: PRODUCT USED FOR UNKNOWN INDICATION
     Route: 048
  11. VITAMIN B COMPLEX (+) ZINC SULFATE [Concomitant]
     Indication: PRODUCT USED FOR UNKNOWN INDICATION
     Route: 048
  12. PROBIOTICA [Concomitant]
     Indication: PRODUCT USED FOR UNKNOWN INDICATION
     Route: 048

REACTIONS (3)
  - Therapeutic response unexpected [Unknown]
  - Off label use [Unknown]
  - Drug ineffective for unapproved indication [Unknown]
